FAERS Safety Report 5098910-8 (Version None)
Quarter: 2006Q3

REPORT INFORMATION
  Report Type: 
  Country: None (occurrence: None)
  Receive Date: 20060905
  Receipt Date: 20060817
  Transmission Date: 20061208
  Serious: Yes (Other)
  Sender: FDA-Public Use
  Company Number: 8018541

PATIENT
  Age: 30 Month
  Sex: Female

DRUGS (2)
  1. LEVETIRACETAM [Suspect]
     Indication: COMPLEX PARTIAL SEIZURES
  2. OXCARBAZEPINE [Concomitant]

REACTIONS (5)
  - AGITATION [None]
  - CONDITION AGGRAVATED [None]
  - CONVULSION [None]
  - EMOTIONAL DISORDER [None]
  - STATUS EPILEPTICUS [None]
